FAERS Safety Report 25459857 (Version 2)
Quarter: 2025Q3

REPORT INFORMATION
  Report Type: Spontaneous
  Country: JP (occurrence: JP)
  Receive Date: 20250620
  Receipt Date: 20250710
  Transmission Date: 20251020
  Serious: Yes (Hospitalization, Other)
  Sender: RANBAXY
  Company Number: JP-SUN PHARMACEUTICAL INDUSTRIES INC-2025R1-512869

PATIENT
  Age: 77 Year
  Sex: Female
  Weight: 60 kg

DRUGS (3)
  1. METHOTREXATE [Suspect]
     Active Substance: METHOTREXATE
     Indication: Rheumatoid arthritis
     Dosage: 4 MILLIGRAM, WEEKLY
     Route: 065
  2. METHOTREXATE [Suspect]
     Active Substance: METHOTREXATE
     Dosage: 8 MILLIGRAM, WEEKLY
     Route: 065
  3. UPADACITINIB [Suspect]
     Active Substance: UPADACITINIB
     Indication: Rheumatoid arthritis
     Dosage: 7.5 MILLIGRAM, QD
     Route: 065

REACTIONS (3)
  - Epstein Barr virus positive mucocutaneous ulcer [Unknown]
  - Pharyngeal haemorrhage [Unknown]
  - Lymphoproliferative disorder [Unknown]
